FAERS Safety Report 14356047 (Version 2)
Quarter: 2018Q1

REPORT INFORMATION
  Report Type: Spontaneous
  Country: AU (occurrence: AU)
  Receive Date: 20180105
  Receipt Date: 20180124
  Transmission Date: 20180509
  Serious: Yes (Other)
  Sender: FDA-Public Use
  Company Number: AU-REGENERON PHARMACEUTICALS, INC.-2018-10222

PATIENT

DRUGS (5)
  1. EYLEA [Suspect]
     Active Substance: AFLIBERCEPT
     Indication: VITREOUS HAEMORRHAGE
     Dosage: ROUTINE RIGHT INFEROTEMPORAL INTRAVITREAL INJECTION;
     Route: 031
  2. EYLEA [Suspect]
     Active Substance: AFLIBERCEPT
     Indication: DIABETIC RETINOPATHY
     Dosage: UNK
  3. CHLORHEXIDINE [Concomitant]
     Active Substance: CHLORHEXIDINE
     Indication: PREOPERATIVE CARE
     Route: 061
  4. CHLORAMPHENICOL [Concomitant]
     Active Substance: CHLORAMPHENICOL
     Indication: POSTOPERATIVE CARE
     Dosage: UNK, QID
     Route: 047
  5. POVIDONE-IODINE. [Concomitant]
     Active Substance: POVIDONE-IODINE
     Indication: PREOPERATIVE CARE
     Dosage: UNK UNK, ONCE
     Route: 047

REACTIONS (5)
  - Necrotising retinitis [Unknown]
  - Retinal ischaemia [Unknown]
  - Hypopyon [Recovered/Resolved]
  - Blindness [Recovered/Resolved]
  - Endophthalmitis [Recovered/Resolved with Sequelae]
